FAERS Safety Report 7620594-2 (Version None)
Quarter: 2011Q3

REPORT INFORMATION
  Report Type: 
  Country: None (occurrence: None)
  Receive Date: 20110719
  Receipt Date: 20110708
  Transmission Date: 20111222
  Serious: Yes (Hospitalization)
  Sender: FDA-Public Use
  Company Number: JP-ROCHE-789252

PATIENT
  Sex: Female
  Weight: 58.6 kg

DRUGS (11)
  1. BIOFERMIN [Concomitant]
     Route: 048
     Dates: start: 20100217
  2. PACLITAXEL [Suspect]
     Indication: BREAST CANCER
     Route: 042
     Dates: start: 20080418, end: 20110427
  3. BEVACIZUMAB [Suspect]
     Indication: BREAST CANCER
     Route: 042
     Dates: start: 20080418, end: 20110427
  4. FAMOTIDINE [Concomitant]
     Route: 048
     Dates: start: 20110427
  5. ETODOLAC [Concomitant]
     Route: 048
     Dates: start: 20100428
  6. LASIX [Concomitant]
     Route: 048
     Dates: start: 20100317
  7. NORVASC [Concomitant]
     Route: 048
     Dates: start: 20100304
  8. KETOPROFEN [Concomitant]
     Dosage: DOSE FORM: TAPE , DOSING: PROPER QUANTITY PER DAY.
     Route: 062
     Dates: start: 20100428
  9. FEMARA [Concomitant]
     Route: 048
     Dates: start: 20110519
  10. OLMESARTAN MEDOXOMIL [Concomitant]
     Route: 048
     Dates: start: 20110303
  11. MUCOSTA [Concomitant]
     Route: 048
     Dates: start: 20100428

REACTIONS (1)
  - AORTIC DISSECTION [None]
